FAERS Safety Report 22073517 (Version 2)
Quarter: 2023Q2

REPORT INFORMATION
  Report Type: Report from Study
  Country: CA (occurrence: CA)
  Receive Date: 20230308
  Receipt Date: 20230505
  Transmission Date: 20230721
  Serious: Yes (Death, Other)
  Sender: FDA-Public Use
  Company Number: CA-002147023-NVSC2023CA006169

PATIENT
  Age: 88 Year
  Sex: Male
  Weight: 61 kg

DRUGS (3)
  1. PIRFENIDONE [Suspect]
     Active Substance: PIRFENIDONE
     Indication: Idiopathic pulmonary fibrosis
     Dosage: UNK
     Route: 065
  2. PIRFENIDONE [Suspect]
     Active Substance: PIRFENIDONE
     Dosage: 267 MG
     Route: 048
  3. VENTOLIN [Concomitant]
     Active Substance: ALBUTEROL SULFATE
     Indication: Product used for unknown indication
     Dosage: UNK (5 PUFFS)
     Route: 065

REACTIONS (7)
  - Death [Fatal]
  - Pulmonary function test abnormal [Unknown]
  - Heart rate increased [Unknown]
  - Forced vital capacity abnormal [Unknown]
  - Dyspnoea [Unknown]
  - Lung diffusion test decreased [Unknown]
  - Total lung capacity decreased [Unknown]
